FAERS Safety Report 14324221 (Version 1)
Quarter: 2017Q4

REPORT INFORMATION
  Report Type: Spontaneous
  Country: US (occurrence: US)
  Receive Date: 20171226
  Receipt Date: 20171226
  Transmission Date: 20180321
  Serious: No
  Sender: FDA-Public Use
  Company Number: US-LUNDBECK-DKLU2041245

PATIENT
  Age: 71 Year
  Sex: Male

DRUGS (1)
  1. NORTHERA [Suspect]
     Active Substance: DROXIDOPA
     Indication: PRODUCT USED FOR UNKNOWN INDICATION
     Dosage: FIXED DOSE OF 100 MG TID
     Route: 065
     Dates: start: 20171128

REACTIONS (6)
  - Fall [Unknown]
  - Fatigue [Unknown]
  - Blood pressure fluctuation [Unknown]
  - Contusion [Unknown]
  - Blood pressure increased [Unknown]
  - Blood pressure immeasurable [Unknown]

NARRATIVE: CASE EVENT DATE: 20171210
